APPROVED DRUG PRODUCT: NOXAFIL
Active Ingredient: POSACONAZOLE
Strength: 300MG/16.7ML (18MG/ML)
Dosage Form/Route: SOLUTION;INTRAVENOUS
Application: N205596 | Product #001
Applicant: MERCK SHARP AND DOHME CORP
Approved: Mar 13, 2014 | RLD: Yes | RS: No | Type: DISCN

PATENTS:
Patent 9023790 | Expires: Jul 4, 2031
Patent 9358297 | Expires: Jun 24, 2031
Patent 9023790 | Expires: Jul 4, 2031
Patent 9358297 | Expires: Jun 24, 2031
Patent 9023790 | Expires: Jul 4, 2031
Patent 9750822 | Expires: Mar 13, 2029
Patent 9493582 | Expires: Feb 27, 2033
Patent 10117951 | Expires: Mar 13, 2029
Patent 8410077 | Expires: Mar 13, 2029

EXCLUSIVITY:
Code: ODE-355 | Date: Jun 17, 2028